FAERS Safety Report 13386141 (Version 2)
Quarter: 2018Q3

REPORT INFORMATION
  Report Type: Spontaneous
  Country: US (occurrence: US)
  Receive Date: 20170330
  Receipt Date: 20180724
  Transmission Date: 20181010
  Serious: No
  Sender: FDA-Public Use
  Company Number: US-BAUSCH-BL-2016-032079

PATIENT
  Sex: Male

DRUGS (1)
  1. JUBLIA [Suspect]
     Active Substance: EFINACONAZOLE
     Indication: PARONYCHIA
     Dosage: 1 APPLICATION DAILY ON AFFECTED TOE NAILS
     Route: 061

REACTIONS (3)
  - Ingrowing nail [Unknown]
  - Drug ineffective [Unknown]
  - Pain [Unknown]
